FAERS Safety Report 19573469 (Version 2)
Quarter: 2021Q3

REPORT INFORMATION
  Report Type: Spontaneous
  Country: TH (occurrence: TH)
  Receive Date: 20210717
  Receipt Date: 20210726
  Transmission Date: 20211014
  Serious: Yes (Other)
  Sender: FDA-Public Use
  Company Number: TH-MACLEODS PHARMACEUTICALS US LTD-MAC2021031891

PATIENT

DRUGS (1)
  1. TENOFOVIR [Suspect]
     Active Substance: TENOFOVIR
     Indication: HIV INFECTION
     Dosage: UNK, TENOFOVIR DISOPROXIL FUMARATE, STOPPED APPROXIMATELY IN 2018?2019
     Route: 048

REACTIONS (2)
  - Chronic kidney disease [Recovering/Resolving]
  - End stage renal disease [Recovering/Resolving]
